FAERS Safety Report 9217075 (Version 2)
Quarter: 2013Q2

REPORT INFORMATION
  Report Type: Spontaneous
  Country: GB (occurrence: None)
  Receive Date: 20130404
  Receipt Date: 20130503
  Transmission Date: 20140414
  Serious: Yes (Other)
  Sender: FDA-Public Use
  Company Number: AUR-APL-2013-02843

PATIENT
  Age: 55 Year
  Sex: Female

DRUGS (4)
  1. PAROXETINE [Suspect]
     Indication: PRODUCT USED FOR UNKNOWN INDICATION
  2. ADVIL (IBUPROFEN) [Suspect]
     Indication: PRODUCT USED FOR UNKNOWN INDICATION
  3. NYTOL [Suspect]
     Indication: PRODUCT USED FOR UNKNOWN INDICATION
  4. DIPHENHYDRAMINE [Suspect]
     Indication: PRODUCT USED FOR UNKNOWN INDICATION

REACTIONS (14)
  - Anxiety [None]
  - Depression [None]
  - Tearfulness [None]
  - Disturbance in attention [None]
  - Depressed mood [None]
  - Mental disorder [None]
  - Memory impairment [None]
  - Self esteem decreased [None]
  - Suicidal ideation [None]
  - Insomnia [None]
  - Panic attack [None]
  - Aggression [None]
  - Overdose [None]
  - Intentional drug misuse [None]
